FAERS Safety Report 5254540-6 (Version None)
Quarter: 2007Q1

REPORT INFORMATION
  Report Type: 
  Country: None (occurrence: None)
  Receive Date: 20070302
  Receipt Date: 20070227
  Transmission Date: 20070707
  Serious: Yes (Hospitalization, Other)
  Sender: FDA-Public Use
  Company Number: FR-BRISTOL-MYERS SQUIBB COMPANY-13608393

PATIENT
  Age: 65 Year
  Sex: Female
  Weight: 50 kg

DRUGS (3)
  1. MUCOMYST [Suspect]
  2. ATROVENT [Concomitant]
  3. BRICANYL [Concomitant]

REACTIONS (2)
  - ASPHYXIA [None]
  - DYSPNOEA [None]
